FAERS Safety Report 11709079 (Version 1)
Quarter: 2015Q4

REPORT INFORMATION
  Report Type: Spontaneous
  Country: US (occurrence: US)
  Receive Date: 20151104
  Receipt Date: 20151104
  Transmission Date: 20160304
  Serious: No
  Sender: FDA-Public Use
  Company Number: US-ELI_LILLY_AND_COMPANY-US201103001032

PATIENT
  Sex: Female

DRUGS (1)
  1. FORTEO [Suspect]
     Active Substance: TERIPARATIDE
     Indication: OSTEOPOROSIS
     Dosage: 20 UG, DAILY (1/D)
     Route: 058
     Dates: start: 201102

REACTIONS (7)
  - Back pain [Unknown]
  - Muscle spasms [Unknown]
  - Dyspnoea [Unknown]
  - Chest pain [Unknown]
  - Tremor [Unknown]
  - Hypersensitivity [Unknown]
  - Headache [Unknown]
